FAERS Safety Report 5744320-7 (Version None)
Quarter: 2008Q2

REPORT INFORMATION
  Report Type: 
  Country: None (occurrence: None)
  Receive Date: 20080516
  Receipt Date: 20080516
  Transmission Date: 20081010
  Serious: No
  Sender: FDA-Public Use
  Company Number: None

PATIENT
  Sex: Male
  Weight: 90.7194 kg

DRUGS (2)
  1. ABILIFY [Suspect]
     Indication: MAJOR DEPRESSION
     Dosage: 5 MG QAM PO
     Route: 048
     Dates: start: 20070601, end: 20080401
  2. PAROXETINE HCL [Concomitant]

REACTIONS (1)
  - TARDIVE DYSKINESIA [None]
